FAERS Safety Report 8724701 (Version 2)
Quarter: 2012Q4

REPORT INFORMATION
  Report Type: 
  Country: CH (occurrence: CH)
  Receive Date: 20120815
  Receipt Date: 20120914
  Transmission Date: 20130627
  Serious: Yes (Hospitalization)
  Sender: FDA-Public Use
  Company Number: CH-PFIZER INC-2012194470

PATIENT
  Age: 65 Year
  Sex: Male
  Weight: 88.6 kg

DRUGS (7)
  1. GENOTROPIN [Suspect]
     Dosage: 0.6 mg, 7/wk
     Route: 058
     Dates: start: 20041109
  2. GEMFIBROZIL [Concomitant]
     Indication: HYPERLIPIDAEMIA
     Dosage: UNK
     Dates: start: 19910315
  3. CORTISONE ACETATE [Concomitant]
     Indication: BLOOD CORTICOTROPHIN DECREASED
     Dosage: UNK
     Dates: start: 19910123
  4. LEVOTHYROXINE [Concomitant]
     Indication: BLOOD THYROID STIMULATING HORMONE DECREASED
     Dosage: UNK
     Dates: start: 19910123
  5. TESTOSTERONE UNDECANOATE [Concomitant]
     Indication: HYPOGONADISM
     Dosage: UNK
     Dates: start: 19910115
  6. FLURAZEPAM [Concomitant]
     Indication: SLEEP DISORDER
     Dosage: UNK
     Dates: start: 20010701
  7. HYDROCORTISONE [Concomitant]
     Indication: BLOOD CORTICOTROPHIN DECREASED
     Dosage: UNK
     Dates: start: 20010701

REACTIONS (1)
  - Cataract [Recovered/Resolved]
